FAERS Safety Report 25013597 (Version 2)
Quarter: 2025Q1

REPORT INFORMATION
  Report Type: Spontaneous
  Country: US (occurrence: US)
  Receive Date: 20250226
  Receipt Date: 20250321
  Transmission Date: 20250408
  Serious: Yes (Other)
  Sender: KEDRION
  Company Number: US-KEDRION-009943

PATIENT
  Age: 77 Year
  Sex: Female
  Weight: 75.75 kg

DRUGS (1)
  1. GAMMAPLEX [Suspect]
     Active Substance: HUMAN IMMUNOGLOBULIN G
     Indication: Myasthenia gravis
     Dosage: NDC # OR UNIQUE ID: 64208-8235-06?DOSE: 80 GM?MANUFACTURER / COMPOUNDER NAME: BIO PRODUCTS LABORA...
     Route: 042
     Dates: start: 20240622

REACTIONS (4)
  - Hypertensive crisis [Recovered/Resolved]
  - Paraesthesia [Recovered/Resolved]
  - Off label use [Unknown]
  - Erythema [Recovered/Resolved]

NARRATIVE: CASE EVENT DATE: 20250212
